FAERS Safety Report 22935410 (Version 3)
Quarter: 2023Q4

REPORT INFORMATION
  Report Type: Spontaneous
  Country: US (occurrence: US)
  Receive Date: 20230912
  Receipt Date: 20231020
  Transmission Date: 20240110
  Serious: Yes (Hospitalization)
  Sender: FDA-Public Use
  Company Number: US-Calliditas-2023CAL01142

PATIENT
  Age: 70 Year
  Sex: Female

DRUGS (1)
  1. TARPEYO [Suspect]
     Active Substance: BUDESONIDE
     Indication: Haematuria
     Dosage: 4 MG (4 MG CAPSULES) ONCE DAILY
     Route: 048
     Dates: start: 20230201

REACTIONS (7)
  - Herpes zoster [Unknown]
  - Illness [Unknown]
  - Off label use [Unknown]
  - Prescribed underdose [Recovered/Resolved]
  - Oral candidiasis [Unknown]
  - Vertigo [Unknown]
  - Bronchitis [Unknown]
